FAERS Safety Report 7569227-4 (Version None)
Quarter: 2011Q2

REPORT INFORMATION
  Report Type: 
  Country: None (occurrence: None)
  Receive Date: 20110623
  Receipt Date: 20110615
  Transmission Date: 20111010
  Serious: Yes (Hospitalization, Disabling, Other)
  Sender: FDA-Public Use
  Company Number: PHEH2007US12546

PATIENT
  Sex: Female

DRUGS (5)
  1. ZOMETA [Suspect]
     Dosage: UNK
  2. NYSTATIN [Concomitant]
  3. PREDNISONE [Concomitant]
  4. ACETAMINOPHEN [Concomitant]
  5. TRILISATE [Concomitant]

REACTIONS (24)
  - ANXIETY [None]
  - PYREXIA [None]
  - DECREASED APPETITE [None]
  - BACK PAIN [None]
  - PRURITUS GENERALISED [None]
  - INFECTION [None]
  - DEFORMITY [None]
  - EMOTIONAL DISTRESS [None]
  - NASAL CONGESTION [None]
  - INSOMNIA [None]
  - HEADACHE [None]
  - MULTIPLE MYELOMA [None]
  - PAIN [None]
  - COUGH [None]
  - OPEN WOUND [None]
  - SWELLING FACE [None]
  - RASH [None]
  - CONFUSIONAL STATE [None]
  - OEDEMA PERIPHERAL [None]
  - ERYTHEMA [None]
  - OSTEOARTHRITIS [None]
  - PNEUMONIA [None]
  - OSTEONECROSIS OF JAW [None]
  - CONSTIPATION [None]
